FAERS Safety Report 6829568-2 (Version None)
Quarter: 2010Q3

REPORT INFORMATION
  Report Type: 
  Country: None (occurrence: None)
  Receive Date: 20100709
  Receipt Date: 20070330
  Transmission Date: 20110219
  Serious: No
  Sender: FDA-Public Use
  Company Number: US-PFIZER INC-2007013694

PATIENT
  Sex: Female
  Weight: 52.2 kg

DRUGS (10)
  1. VARENICLINE [Suspect]
     Indication: TOBACCO ABUSE
     Dates: start: 20070122, end: 20070127
  2. LEVOTHYROXINE SODIUM [Concomitant]
  3. IMIPRAMINE [Concomitant]
  4. PERCOCET [Concomitant]
  5. MORPHINE [Concomitant]
  6. METHYLPREDNISOLONE [Concomitant]
  7. NEXIUM [Concomitant]
  8. CALCIUM CARBONATE [Concomitant]
  9. VITAMIN C [Concomitant]
  10. SOMA [Concomitant]

REACTIONS (2)
  - DIZZINESS [None]
  - DYSPNOEA [None]
